FAERS Safety Report 9245022 (Version 3)
Quarter: 2014Q1

REPORT INFORMATION
  Report Type: Report from Study
  Country: NL (occurrence: NL)
  Receive Date: 20130422
  Receipt Date: 20140124
  Transmission Date: 20141002
  Serious: Yes (Death, Hospitalization, Other)
  Sender: FDA-Public Use
  Company Number: PHHY2013NL024688

PATIENT
  Age: 72 Year
  Sex: Female

DRUGS (7)
  1. ZOMETA [Suspect]
     Indication: BREAST CANCER METASTATIC
     Dosage: 4 MG, PER 100 ML ONCE PER 28 DAYS
     Route: 042
     Dates: start: 201108
  2. ZOMETA [Suspect]
     Dosage: 4 MG, PER 100 ML ONCE PER 28 DAYS
     Route: 042
     Dates: start: 20110902
  3. ZOMETA [Suspect]
     Dosage: 4 MG, PER 100 ML ONCE PER 28 DAYS
     Route: 042
     Dates: start: 20130213
  4. ZOMETA [Suspect]
     Dosage: 4 MG, PER 100 ML ONCE PER 28 DAYS
     Route: 042
     Dates: start: 20130312, end: 201303
  5. EVEROLIMUS [Suspect]
     Indication: BREAST CANCER METASTATIC
     Dosage: 10 MG, 1DD1
     Route: 048
     Dates: start: 20130107, end: 20130310
  6. PANTOZOL [Concomitant]
     Dosage: 40 MG, 1DD1
  7. EXEMESTANE [Concomitant]
     Dosage: 25 MG, 1DD1
     Dates: start: 20130107

REACTIONS (21)
  - Weight decreased [Fatal]
  - Arrhythmia [Fatal]
  - Cardiac failure [Fatal]
  - Dyspnoea [Fatal]
  - Fatigue [Fatal]
  - Cough [Fatal]
  - Decreased appetite [Fatal]
  - Atrial fibrillation [Unknown]
  - Terminal state [Unknown]
  - Metastases to lung [Unknown]
  - General physical health deterioration [Unknown]
  - Pulmonary oedema [Unknown]
  - Breast cancer metastatic [Unknown]
  - Malignant neoplasm progression [Unknown]
  - Malignant pleural effusion [Unknown]
  - Oedema peripheral [Unknown]
  - Orthopnoea [Unknown]
  - Nausea [Unknown]
  - Abdominal pain upper [Unknown]
  - Asthenia [Unknown]
  - Weight increased [Unknown]
